FAERS Safety Report 9539729 (Version 1)
Quarter: 2013Q3

REPORT INFORMATION
  Report Type: Spontaneous
  Country: US (occurrence: US)
  Receive Date: 20130920
  Receipt Date: 20130920
  Transmission Date: 20140515
  Serious: No
  Sender: FDA-Public Use
  Company Number: US-PURDUE-USA-2013-0100198

PATIENT
  Sex: Female

DRUGS (2)
  1. INTERMEZZO [Suspect]
     Indication: DEPRESSION
     Route: 060
  2. INTERMEZZO [Suspect]
     Indication: ANXIETY

REACTIONS (1)
  - Drug ineffective [Unknown]
